FAERS Safety Report 10494233 (Version 2)
Quarter: 2014Q4

REPORT INFORMATION
  Report Type: Spontaneous
  Country: CH (occurrence: CH)
  Receive Date: 20141003
  Receipt Date: 20141003
  Transmission Date: 20150528
  Serious: Yes (Death, Hospitalization, Other)
  Sender: FDA-Public Use
  Company Number: CH-CELGENE-151-21660-14074542

PATIENT
  Age: 52 Year
  Sex: Male

DRUGS (11)
  1. FRAGMIN [Concomitant]
     Active Substance: DALTEPARIN SODIUM
     Indication: PORTAL VEIN THROMBOSIS
     Route: 058
     Dates: start: 20140721
  2. DEXAMETHASONE. [Concomitant]
     Active Substance: DEXAMETHASONE
     Indication: PANCREATIC CARCINOMA
     Route: 065
     Dates: start: 20140715
  3. MOTILIUM [Concomitant]
     Active Substance: DOMPERIDONE
     Indication: PANCREATIC CARCINOMA
     Route: 048
     Dates: start: 20140715
  4. ZANTAC [Concomitant]
     Active Substance: RANITIDINE HYDROCHLORIDE
     Indication: PANCREATIC CARCINOMA
     Route: 041
     Dates: start: 20140715
  5. GEMZAR [Concomitant]
     Active Substance: GEMCITABINE HYDROCHLORIDE
     Route: 041
     Dates: start: 2012
  6. ZARZIO [Concomitant]
     Active Substance: FILGRASTIM
     Indication: PROPHYLAXIS
     Route: 058
     Dates: start: 20140715, end: 20140721
  7. ABRAXANE [Suspect]
     Active Substance: PACLITAXEL
     Indication: PANCREATIC CARCINOMA
     Route: 065
     Dates: start: 20140417
  8. DAFALGAN [Concomitant]
     Active Substance: ACETAMINOPHEN
     Indication: PANCREATIC CARCINOMA
     Route: 041
     Dates: start: 20140715
  9. GEMZAR [Concomitant]
     Active Substance: GEMCITABINE HYDROCHLORIDE
     Indication: PANCREATIC CARCINOMA
     Route: 041
     Dates: start: 20140429, end: 20140715
  10. TAVEGYL [Concomitant]
     Active Substance: CLEMASTINE FUMARATE
     Indication: PANCREATIC CARCINOMA
     Route: 041
     Dates: start: 20140715
  11. ABRAXANE [Suspect]
     Active Substance: PACLITAXEL
     Dosage: 18000 IU (INTERNATIONAL UNIT)
     Route: 065
     Dates: start: 20140701, end: 20140715

REACTIONS (3)
  - Escherichia sepsis [Unknown]
  - Pulmonary oedema [Fatal]
  - Myocardial infarction [Fatal]

NARRATIVE: CASE EVENT DATE: 20140722
